FAERS Safety Report 19820757 (Version 1)
Quarter: 2021Q3

REPORT INFORMATION
  Report Type: Spontaneous
  Country: US (occurrence: US)
  Receive Date: 20210912
  Receipt Date: 20210912
  Transmission Date: 20211014
  Serious: Yes (Disabling)
  Sender: FDA-Public Use
  Company Number: None

PATIENT
  Age: 65 Year
  Sex: Male
  Weight: 78.75 kg

DRUGS (14)
  1. VIAGRA [Concomitant]
     Active Substance: SILDENAFIL CITRATE
  2. FLUTICASONE. [Concomitant]
     Active Substance: FLUTICASONE
  3. SKYRIZI [Suspect]
     Active Substance: RISANKIZUMAB-RZAA
     Indication: PSORIASIS
     Route: 030
     Dates: start: 20210716, end: 20210813
  4. BUSPIRONE [Concomitant]
     Active Substance: BUSPIRONE HYDROCHLORIDE
  5. ALLEGRA [Concomitant]
     Active Substance: FEXOFENADINE HYDROCHLORIDE
  6. GABAPENTIN. [Concomitant]
     Active Substance: GABAPENTIN
  7. ALPRAZOLAM. [Concomitant]
     Active Substance: ALPRAZOLAM
  8. ATROVENT [Concomitant]
     Active Substance: IPRATROPIUM BROMIDE
  9. DEPLIN [Concomitant]
     Active Substance: LEVOMEFOLATE CALCIUM
  10. SKYRIZI [Concomitant]
     Active Substance: RISANKIZUMAB-RZAA
  11. LEXAPRO [Concomitant]
     Active Substance: ESCITALOPRAM OXALATE
  12. VITAMIN D [Concomitant]
     Active Substance: VITAMIN D NOS
  13. MULTIVITAMINS [Concomitant]
     Active Substance: VITAMINS
  14. VITAMIN E [Concomitant]
     Active Substance: .ALPHA.-TOCOPHEROL

REACTIONS (5)
  - Nausea [None]
  - Crying [None]
  - Symptom recurrence [None]
  - Anxiety [None]
  - Fear [None]

NARRATIVE: CASE EVENT DATE: 20210813
